FAERS Safety Report 5244001-2 (Version None)
Quarter: 2007Q1

REPORT INFORMATION
  Report Type: 
  Country: None (occurrence: None)
  Receive Date: 20070222
  Receipt Date: 20070215
  Transmission Date: 20070707
  Serious: Yes (Other)
  Sender: FDA-Public Use
  Company Number: US-JNJFOC-20061204615

PATIENT
  Sex: Female

DRUGS (3)
  1. TYLENOL (CAPLET) [Suspect]
     Route: 048
  2. TYLENOL (CAPLET) [Suspect]
     Indication: NEURALGIA
     Dosage: 650 MG EVERY 4-5 HOURS AS NEEDED
     Route: 048
  3. DIURETIC [Suspect]
     Indication: HYPERTENSION
     Dosage: 12.5-25 MG QD

REACTIONS (2)
  - HEART RATE INCREASED [None]
  - HYPERTENSION [None]
